FAERS Safety Report 6912244-5 (Version None)
Quarter: 2010Q3

REPORT INFORMATION
  Report Type: 
  Country: None (occurrence: None)
  Receive Date: 20100806
  Receipt Date: 20080119
  Transmission Date: 20110219
  Serious: No
  Sender: FDA-Public Use
  Company Number: US-PFIZER INC-2008006526

PATIENT
  Sex: Male
  Weight: 88.636 kg

DRUGS (2)
  1. DETROL LA [Suspect]
     Indication: HYPERTONIC BLADDER
     Dates: start: 20080101
  2. ANTIBIOTICS [Concomitant]
     Dates: start: 20080101

REACTIONS (3)
  - FATIGUE [None]
  - NASAL CONGESTION [None]
  - NASAL DRYNESS [None]
